FAERS Safety Report 23959929 (Version 5)
Quarter: 2024Q3

REPORT INFORMATION
  Report Type: Report from Study
  Country: KR (occurrence: None)
  Receive Date: 20240611
  Receipt Date: 20240719
  Transmission Date: 20241017
  Serious: Yes (Hospitalization, Other)
  Sender: ASTRAZENECA
  Company Number: 2024A123982

PATIENT
  Age: 25576 Day
  Sex: Male

DRUGS (2)
  1. TAGRISSO [Suspect]
     Active Substance: OSIMERTINIB
     Indication: Lung neoplasm malignant
     Route: 048
     Dates: start: 20240524
  2. TAGRISSO [Suspect]
     Active Substance: OSIMERTINIB
     Indication: Lung neoplasm malignant
     Route: 048
     Dates: start: 20240611

REACTIONS (14)
  - Duodenal ulcer [Unknown]
  - Duodenal ulcer haemorrhage [Recovered/Resolved]
  - Melaena [Recovered/Resolved]
  - Metastases to prostate [Unknown]
  - Metastases to lymph nodes [Unknown]
  - Pain [Unknown]
  - Sleep disorder [Recovering/Resolving]
  - Decreased appetite [Not Recovered/Not Resolved]
  - Dizziness [Unknown]
  - Asthenia [Unknown]
  - Hordeolum [Unknown]
  - Weight fluctuation [Unknown]
  - Stomatitis [Unknown]
  - Fatigue [Unknown]

NARRATIVE: CASE EVENT DATE: 20240525
